FAERS Safety Report 17315517 (Version 1)
Quarter: 2020Q1

REPORT INFORMATION
  Report Type: Spontaneous
  Country: JP (occurrence: JP)
  Receive Date: 20200124
  Receipt Date: 20200124
  Transmission Date: 20200409
  Serious: Yes (Death, Hospitalization)
  Sender: FDA-Public Use
  Company Number: JP-MYLANLABS-2020M1008715

PATIENT
  Age: 82 Year
  Sex: Female

DRUGS (4)
  1. TOCILIZUMAB. [Suspect]
     Active Substance: TOCILIZUMAB
     Indication: STILL^S DISEASE
     Dosage: 400MG = 8MG/KG
     Route: 042
  2. PREDNISOLONE. [Suspect]
     Active Substance: PREDNISOLONE
     Indication: STILL^S DISEASE
     Dosage: 50 MILLIGRAM, QD
     Route: 048
  3. CICLOSPORIN [Suspect]
     Active Substance: CYCLOSPORINE
     Indication: STILL^S DISEASE
     Dosage: 200 MILLIGRAM, QD
     Route: 048
  4. METHYLPREDNISOLONE. [Suspect]
     Active Substance: METHYLPREDNISOLONE
     Indication: STILL^S DISEASE
     Dosage: FOR 3 DAYS
     Route: 065

REACTIONS (5)
  - Pneumonia cytomegaloviral [Fatal]
  - Gastric perforation [Fatal]
  - Gastrointestinal mucormycosis [Fatal]
  - Gastropleural fistula [Fatal]
  - Pneumothorax [Recovering/Resolving]
